FAERS Safety Report 8110904-4 (Version None)
Quarter: 2012Q1

REPORT INFORMATION
  Report Type: 
  Country: None (occurrence: None)
  Receive Date: 20120127
  Receipt Date: 20120123
  Transmission Date: 20120608
  Serious: Yes (Hospitalization)
  Sender: FDA-Public Use
  Company Number: 2011029992

PATIENT
  Age: 50 Year
  Sex: Female
  Weight: 83.4619 kg

DRUGS (35)
  1. PREMARIN [Concomitant]
  2. AMOXICILLIN [Concomitant]
  3. DOXYCYCLINE HYCLATE (DOXYCYCLINE HYCLATE) [Concomitant]
  4. PREDNISONE TAB [Concomitant]
  5. HIZENTRA [Suspect]
  6. HIZENTRA [Suspect]
  7. HIZENTRA [Suspect]
  8. CONAZEPAM (CLONAZEPAM) [Concomitant]
  9. PROAIR HFA (PRO9CATEROL HYDROCHLORIDE) [Concomitant]
  10. HIZENTRA [Suspect]
  11. HIZENTRA [Suspect]
  12. HIZENTRA [Suspect]
  13. OMEPRAZOLE [Concomitant]
  14. MULTIVITAMIN (ACCOMIN MULTIVITAMIN) [Concomitant]
  15. HIZENTRA [Suspect]
     Indication: HYPOGAMMAGLOBULINAEMIA
     Dosage: 15;1;75;2; GM VIAL; WEEKLY IN 3-5 SITES OVER 1-2 HOURS, SUBCUTANEOUS
     Route: 058
     Dates: start: 20110923, end: 20110923
  16. HIZENTRA [Suspect]
     Indication: HYPOGAMMAGLOBULINAEMIA
     Dosage: 15;1;75;2; GM VIAL; WEEKLY IN 3-5 SITES OVER 1-2 HOURS, SUBCUTANEOUS
     Route: 058
     Dates: start: 20110916, end: 20110916
  17. HIZENTRA [Suspect]
     Indication: HYPOGAMMAGLOBULINAEMIA
     Dosage: 15;1;75;2; GM VIAL; WEEKLY IN 3-5 SITES OVER 1-2 HOURS, SUBCUTANEOUS
     Route: 058
     Dates: start: 20110930, end: 20110930
  18. HIZENTRA [Suspect]
     Indication: HYPOGAMMAGLOBULINAEMIA
     Dosage: 15;1;75;2; GM VIAL; WEEKLY IN 3-5 SITES OVER 1-2 HOURS, SUBCUTANEOUS
     Route: 058
     Dates: start: 20111007, end: 20111007
  19. HIZENTRA [Suspect]
     Indication: HYPOGAMMAGLOBULINAEMIA
     Dosage: 15;1;75;2; GM VIAL; WEEKLY IN 3-5 SITES OVER 1-2 HOURS, SUBCUTANEOUS
     Route: 058
     Dates: start: 20110916, end: 20110916
  20. HIZENTRA [Suspect]
     Indication: HYPOGAMMAGLOBULINAEMIA
     Dosage: 15;1;75;2; GM VIAL; WEEKLY IN 3-5 SITES OVER 1-2 HOURS, SUBCUTANEOUS
     Route: 058
     Dates: start: 20110916, end: 20110916
  21. HIZENTRA [Suspect]
  22. HIZENTRA [Suspect]
  23. HIZENTRA [Suspect]
  24. IBUPROFEN [Concomitant]
  25. HIZENTRA [Suspect]
  26. HIZENTRA [Suspect]
  27. HIZENTRA [Suspect]
  28. HIZENTRA [Suspect]
  29. ZOFRAN [Concomitant]
  30. HIZENTRA [Suspect]
  31. HIZENTRA [Suspect]
  32. ALBUTEROL [Concomitant]
  33. HIZENTRA [Suspect]
  34. HIZENTRA [Suspect]
  35. FEXOFENADINE PSE (FEXOFENADINE) [Concomitant]

REACTIONS (16)
  - BODY TEMPERATURE INCREASED [None]
  - NAUSEA [None]
  - INFUSION SITE SWELLING [None]
  - PROCEDURAL COMPLICATION [None]
  - VOMITING [None]
  - INFUSION SITE WARMTH [None]
  - VENOUS INJURY [None]
  - SINUSITIS [None]
  - TENDERNESS [None]
  - SECRETION DISCHARGE [None]
  - DIARRHOEA [None]
  - MENINGITIS VIRAL [None]
  - INFUSION SITE REACTION [None]
  - INFUSION SITE PAIN [None]
  - INFUSION SITE ERYTHEMA [None]
  - HEADACHE [None]
